FAERS Safety Report 6820621-6 (Version None)
Quarter: 2010Q3

REPORT INFORMATION
  Report Type: 
  Country: None (occurrence: None)
  Receive Date: 20100707
  Receipt Date: 20100622
  Transmission Date: 20110219
  Serious: Yes (Other)
  Sender: FDA-Public Use
  Company Number: ES-BIOGENIDEC-2010BI005540

PATIENT
  Age: 28 Year
  Sex: Female

DRUGS (4)
  1. TYSABRI [Suspect]
     Indication: MULTIPLE SCLEROSIS
     Route: 042
     Dates: start: 20091215, end: 20091215
  2. TYSABRI [Suspect]
     Route: 042
     Dates: start: 20100525
  3. LYRICA [Concomitant]
  4. TEGRETOL [Concomitant]

REACTIONS (2)
  - HAEMOLYTIC ANAEMIA [None]
  - MULTIPLE SCLEROSIS RELAPSE [None]
